FAERS Safety Report 24843591 (Version 1)
Quarter: 2025Q1

REPORT INFORMATION
  Report Type: Spontaneous
  Country: FR (occurrence: FR)
  Receive Date: 20250115
  Receipt Date: 20250115
  Transmission Date: 20250409
  Serious: Yes (Hospitalization)
  Sender: SANOFI AVENTIS
  Company Number: None

PATIENT
  Age: 40 Year
  Sex: Male

DRUGS (7)
  1. RIFAMPIN [Suspect]
     Active Substance: RIFAMPIN
     Indication: Post procedural infection
     Dosage: 900 MG, QD
     Dates: start: 20241115, end: 20241124
  2. SULFAMETHOXAZOLE\TRIMETHOPRIM [Suspect]
     Active Substance: SULFAMETHOXAZOLE\TRIMETHOPRIM
     Indication: Post procedural infection
     Dosage: 3 G, QD
     Dates: start: 20241115, end: 20241124
  3. LEVETIRACETAM [Concomitant]
     Active Substance: LEVETIRACETAM
  4. CLOBAZAM [Concomitant]
     Active Substance: CLOBAZAM
  5. MESALAMINE [Concomitant]
     Active Substance: MESALAMINE
  6. ZOPICLONE [Concomitant]
     Active Substance: ZOPICLONE
  7. PERAMPANEL [Concomitant]
     Active Substance: PERAMPANEL

REACTIONS (1)
  - Rash maculo-papular [Recovered/Resolved]

NARRATIVE: CASE EVENT DATE: 20241124
